FAERS Safety Report 23078437 (Version 1)
Quarter: 2023Q4

REPORT INFORMATION
  Report Type: Spontaneous
  Country: US (occurrence: US)
  Receive Date: 20231018
  Receipt Date: 20231018
  Transmission Date: 20240110
  Serious: No
  Sender: FDA-Public Use
  Company Number: US-STRIDES ARCOLAB LIMITED-2023SP000455

PATIENT

DRUGS (1)
  1. NATEGLINIDE [Suspect]
     Active Substance: NATEGLINIDE
     Indication: Hyperglycaemia
     Dosage: UNK, (OVAL, ORANGE, TABLETS WITH A P985 WRITTEN ON THE TABLET)
     Route: 065

REACTIONS (1)
  - Product dose omission issue [Unknown]
